FAERS Safety Report 4445601-X (Version None)
Quarter: 2004Q3

REPORT INFORMATION
  Report Type: 
  Country: None (occurrence: None)
  Receive Date: 20040902
  Receipt Date: 20040818
  Transmission Date: 20050211
  Serious: No
  Sender: FDA-Public Use
  Company Number: A04200400768

PATIENT
  Age: 57 Year
  Sex: Male

DRUGS (2)
  1. UROXATRAL [Suspect]
     Indication: PROSTATIC ADENOMA
     Dosage: 10 MG OD; ORAL
     Route: 048
     Dates: start: 20021101
  2. UROXATRAL [Suspect]
     Indication: PROSTATIC OBSTRUCTION
     Dosage: 10 MG OD; ORAL
     Route: 048
     Dates: start: 20021101

REACTIONS (2)
  - MYELODYSPLASTIC SYNDROME [None]
  - REFRACTORY ANAEMIA WITH AN EXCESS OF BLASTS [None]
